FAERS Safety Report 23841331 (Version 1)
Quarter: 2024Q2

REPORT INFORMATION
  Report Type: Spontaneous
  Country: FR (occurrence: FR)
  Receive Date: 20240510
  Receipt Date: 20240510
  Transmission Date: 20240715
  Serious: Yes (Life-Threatening, Hospitalization)
  Sender: FDA-Public Use
  Company Number: None

PATIENT
  Age: 89 Year
  Sex: Male

DRUGS (3)
  1. CLOZAPINE [Suspect]
     Active Substance: CLOZAPINE
     Indication: Medication error
     Dates: start: 20240315, end: 20240315
  2. VALPROMIDE [Suspect]
     Active Substance: VALPROMIDE
     Indication: Medication error
     Dosage: 300 MG, GASTRO-RESISTANT FILM-COATED TABLET
     Dates: start: 20240315, end: 20240315
  3. XANAX [Suspect]
     Active Substance: ALPRAZOLAM
     Indication: Medication error
     Dosage: 0.50 MG, SCORED TABLET
     Dates: start: 20240315, end: 20240315

REACTIONS (7)
  - Somnolence [Recovered/Resolved]
  - Inflammation [Recovered/Resolved]
  - Coma [Recovered/Resolved]
  - Bradypnoea [Recovered/Resolved]
  - Product administration error [Recovered/Resolved]
  - Hypotension [Recovered/Resolved]
  - Wrong patient [Recovered/Resolved]

NARRATIVE: CASE EVENT DATE: 20240315
